FAERS Safety Report 6800958-7 (Version None)
Quarter: 2010Q2

REPORT INFORMATION
  Report Type: 
  Country: None (occurrence: None)
  Receive Date: 20100629
  Receipt Date: 20100622
  Transmission Date: 20101027
  Serious: Yes (Other)
  Sender: FDA-Public Use
  Company Number: PHHY2010BR17961

PATIENT
  Age: 17 Year
  Sex: Female
  Weight: 60 kg

DRUGS (3)
  1. TRILEPTAL [Suspect]
     Indication: CONVULSION
     Dosage: 1 DF, QD (AT 18H00)
     Route: 048
     Dates: start: 20080101
  2. TRILEPTAL [Suspect]
     Dosage: 1 DF, QOD (AT 18H00)
     Route: 048
  3. TRILEPTAL [Suspect]
     Dosage: 1 DF, BID
     Route: 048
     Dates: start: 20090101

REACTIONS (4)
  - CONVULSION [None]
  - PAIN IN EXTREMITY [None]
  - TAENIASIS [None]
  - TREATMENT NONCOMPLIANCE [None]
